FAERS Safety Report 5409512-5 (Version None)
Quarter: 2007Q3

REPORT INFORMATION
  Report Type: 
  Country: None (occurrence: None)
  Receive Date: 20070808
  Receipt Date: 20070808
  Transmission Date: 20080115
  Serious: Yes (Other)
  Sender: FDA-Public Use
  Company Number: None

PATIENT
  Age: 43 Year
  Sex: Female
  Weight: 86.1834 kg

DRUGS (4)
  1. SEROQUEL [Suspect]
     Indication: LYME DISEASE
     Dosage: 200 MG 1 TABLET PM ONLY PO
     Route: 048
     Dates: start: 20010101, end: 20070807
  2. SEROQUEL [Suspect]
     Indication: PSYCHOTIC DISORDER
     Dosage: 200 MG 1 TABLET PM ONLY PO
     Route: 048
     Dates: start: 20010101, end: 20070807
  3. SEROQUEL [Suspect]
     Indication: LYME DISEASE
     Dosage: 25 MG 1 TABLET AM ONLY PO
     Route: 048
     Dates: start: 20010101, end: 20070807
  4. SEROQUEL [Suspect]
     Indication: PSYCHOTIC DISORDER
     Dosage: 25 MG 1 TABLET AM ONLY PO
     Route: 048
     Dates: start: 20010101, end: 20070807

REACTIONS (11)
  - BODY TEMPERATURE INCREASED [None]
  - CONDITION AGGRAVATED [None]
  - CONVULSION [None]
  - DISSOCIATION [None]
  - FATIGUE [None]
  - HORMONE LEVEL ABNORMAL [None]
  - INCORRECT DOSE ADMINISTERED [None]
  - NEUROTRANSMITTER LEVEL ALTERED [None]
  - PSYCHOTIC DISORDER [None]
  - SUICIDAL IDEATION [None]
  - WEIGHT INCREASED [None]
